FAERS Safety Report 7412267-6 (Version None)
Quarter: 2011Q2

REPORT INFORMATION
  Report Type: 
  Country: None (occurrence: None)
  Receive Date: 20110413
  Receipt Date: 20110410
  Transmission Date: 20111010
  Serious: Yes (Death)
  Sender: FDA-Public Use
  Company Number: US-ROCHE-764374

PATIENT
  Sex: Male

DRUGS (4)
  1. CARBOPLATIN [Concomitant]
  2. PEMETREXED [Concomitant]
  3. AVASTIN [Suspect]
     Route: 042
     Dates: start: 20100202
  4. PAXIL [Concomitant]

REACTIONS (2)
  - WOUND DEHISCENCE [None]
  - PULMONARY HAEMORRHAGE [None]
